FAERS Safety Report 16847185 (Version 4)
Quarter: 2019Q4

REPORT INFORMATION
  Report Type: Report from Study
  Country: IT (occurrence: IT)
  Receive Date: 20190924
  Receipt Date: 20191210
  Transmission Date: 20200122
  Serious: Yes (Hospitalization)
  Sender: FDA-Public Use
  Company Number: IT-CELGENEUS-ITA-20190906595

PATIENT
  Age: 60 Year
  Sex: Male
  Weight: 69 kg

DRUGS (12)
  1. VINCRISTINE [Suspect]
     Active Substance: VINCRISTINE
     Indication: T-CELL LYMPHOMA
     Dosage: 2 MILLIGRAM
     Route: 041
     Dates: start: 20190715, end: 20190917
  2. ENDOXAN [Suspect]
     Active Substance: CYCLOPHOSPHAMIDE
     Indication: T-CELL LYMPHOMA
     Dosage: 1000 MILLIGRAM
     Route: 041
     Dates: start: 20190715, end: 20190917
  3. FILGRASTIM [Concomitant]
     Active Substance: FILGRASTIM
     Route: 065
     Dates: start: 20190929, end: 20190929
  4. ROMIDEPSIN. [Suspect]
     Active Substance: ROMIDEPSIN
     Indication: T-CELL LYMPHOMA
     Dosage: CICLO 1,21.6 MG, CICLO 2 24.36MG, ?CICLO 3 24.36MG
     Route: 041
     Dates: start: 20190715, end: 20190917
  5. PREDNISONE. [Suspect]
     Active Substance: PREDNISONE
     Indication: T-CELL LYMPHOMA
     Dosage: 100 MILLIGRAM
     Route: 048
     Dates: start: 20190715, end: 20190917
  6. FILGRASTIM [Concomitant]
     Active Substance: FILGRASTIM
     Route: 065
     Dates: start: 20190918, end: 20190918
  7. FILGRASTIM [Concomitant]
     Active Substance: FILGRASTIM
     Route: 065
     Dates: start: 20190923, end: 20190923
  8. FILGRASTIM [Concomitant]
     Active Substance: FILGRASTIM
     Route: 065
     Dates: start: 20190830, end: 20190903
  9. ETOPOSIDE. [Suspect]
     Active Substance: ETOPOSIDE
     Indication: T-CELL LYMPHOMA
     Dosage: 150 MILLIGRAM
     Route: 041
     Dates: start: 20190715, end: 20190917
  10. DOXORUBICIN [Suspect]
     Active Substance: DOXORUBICIN
     Indication: T-CELL LYMPHOMA
     Dosage: 80 MILLIGRAM
     Route: 041
     Dates: start: 20190715, end: 20190917
  11. FILGRASTIM [Concomitant]
     Active Substance: FILGRASTIM
     Route: 065
     Dates: start: 20190925, end: 20190925
  12. FILGRASTIM [Concomitant]
     Active Substance: FILGRASTIM
     Indication: PROPHYLAXIS
     Route: 065
     Dates: start: 20190813, end: 20190816

REACTIONS (1)
  - Cytomegalovirus chorioretinitis [Recovered/Resolved]

NARRATIVE: CASE EVENT DATE: 20190917
